FAERS Safety Report 10103763 (Version 3)
Quarter: 2014Q2

REPORT INFORMATION
  Report Type: Spontaneous
  Country: CN (occurrence: CN)
  Receive Date: 20140424
  Receipt Date: 20140516
  Transmission Date: 20141212
  Serious: Yes (Hospitalization)
  Sender: FDA-Public Use
  Company Number: CN-009507513-1404CHN012431

PATIENT
  Age: 66 Year
  Sex: Male
  Weight: 60 kg

DRUGS (7)
  1. EMEND [Suspect]
     Indication: PROPHYLAXIS OF NAUSEA AND VOMITING
     Dosage: STRENGTH: 125MG, 125 MG, QD (DAY 1)
     Route: 048
     Dates: start: 20140301, end: 20140301
  2. EMEND [Suspect]
     Dosage: STRENGTH: 80MG, 80 MG, QD (DAY 2)
     Route: 048
     Dates: start: 20140302, end: 20140302
  3. EMEND [Suspect]
     Dosage: STRENGTH: 80MG, 80 MG, QD (DAY 3)
     Route: 048
     Dates: start: 20140303, end: 20140303
  4. VP-16 [Concomitant]
     Indication: SMALL CELL LUNG CANCER
     Dosage: 0.1G VIAL, INJECTED ON THE FIRST DAY, THE THIRD DAY AND THE FIFTH DAY
     Route: 041
     Dates: start: 20140213, end: 20140218
  5. NEDAPLATIN [Concomitant]
     Indication: SMALL CELL LUNG CANCER
     Dosage: 40 MG, DAILY DOSE
     Route: 041
     Dates: start: 20140213, end: 20140214
  6. DEXAMETHASONE [Concomitant]
     Indication: VOMITING
     Dosage: TOTAL DAILY DOSE: 5 MG
     Route: 041
     Dates: start: 20140213, end: 20140213
  7. GRANISETRON [Concomitant]
     Indication: VOMITING
     Dosage: 12 MG, QD
     Route: 041
     Dates: start: 20140213, end: 20140216

REACTIONS (1)
  - Extrapyramidal disorder [Recovered/Resolved]
